FAERS Safety Report 22223201 (Version 1)
Quarter: 2023Q2

REPORT INFORMATION
  Report Type: Spontaneous
  Country: TH (occurrence: TH)
  Receive Date: 20230418
  Receipt Date: 20230418
  Transmission Date: 20230722
  Serious: Yes (Other)
  Sender: FDA-Public Use
  Company Number: TH-CHEPLA-2023004812

PATIENT
  Age: 62 Year
  Sex: Female

DRUGS (1)
  1. HYDROXYUREA [Suspect]
     Active Substance: HYDROXYUREA
     Indication: Polycythaemia vera
     Dosage: DAILY DOSE: 500 MILLIGRAM

REACTIONS (2)
  - Disseminated sporotrichosis [Recovered/Resolved]
  - Osteomyelitis acute [Recovered/Resolved]
